FAERS Safety Report 6325257-1 (Version None)
Quarter: 2009Q3

REPORT INFORMATION
  Report Type: 
  Country: None (occurrence: None)
  Receive Date: 20090824
  Receipt Date: 20090629
  Transmission Date: 20100115
  Serious: No
  Sender: FDA-Public Use
  Company Number: US-ABBOTT-09P-163-0582478-00

PATIENT
  Sex: Female
  Weight: 100.79 kg

DRUGS (10)
  1. NIASPAN [Suspect]
     Indication: BLOOD CHOLESTEROL INCREASED
     Dates: start: 20090301
  2. PREDNISONE TAB [Concomitant]
     Indication: DRUG USE FOR UNKNOWN INDICATION
  3. CELEBREX [Concomitant]
     Indication: DRUG USE FOR UNKNOWN INDICATION
  4. ATENOLOL [Concomitant]
     Indication: DRUG USE FOR UNKNOWN INDICATION
  5. ACCUPRIL [Concomitant]
     Indication: DRUG USE FOR UNKNOWN INDICATION
  6. TYLENOL W/ CODEINE [Concomitant]
     Indication: DRUG USE FOR UNKNOWN INDICATION
  7. FISH OIL [Concomitant]
     Indication: DRUG USE FOR UNKNOWN INDICATION
  8. CALCIUM [Concomitant]
     Indication: DRUG USE FOR UNKNOWN INDICATION
  9. MAGNESIUM [Concomitant]
     Indication: DRUG USE FOR UNKNOWN INDICATION
  10. COQ10 [Concomitant]
     Indication: DRUG USE FOR UNKNOWN INDICATION

REACTIONS (3)
  - CONSTIPATION [None]
  - FLUSHING [None]
  - SKIN BURNING SENSATION [None]
